FAERS Safety Report 13722370 (Version 2)
Quarter: 2017Q3

REPORT INFORMATION
  Report Type: Spontaneous
  Country: DE (occurrence: DE)
  Receive Date: 20170706
  Receipt Date: 20170807
  Transmission Date: 20171127
  Serious: Yes (Life-Threatening, Hospitalization)
  Sender: FDA-Public Use
  Company Number: DE-TEVA-782376GER

PATIENT
  Age: 25 Year
  Sex: Male

DRUGS (1)
  1. CLOZAPIN-RATIOPHARM 50 MG TABLETTEN [Suspect]
     Active Substance: CLOZAPINE
     Indication: SCHIZOPHRENIA
     Dosage: 175 MILLIGRAM DAILY; 50-0-125-0
     Route: 048
     Dates: start: 20170517, end: 20170601

REACTIONS (2)
  - Myocarditis [Unknown]
  - Myocarditis post infection [Unknown]

NARRATIVE: CASE EVENT DATE: 20170601
